FAERS Safety Report 5901259-1 (Version None)
Quarter: 2008Q3

REPORT INFORMATION
  Report Type: 
  Country: None (occurrence: None)
  Receive Date: 20080929
  Receipt Date: 20080718
  Transmission Date: 20090109
  Serious: No
  Sender: FDA-Public Use
  Company Number: US-BRISTOL-MYERS SQUIBB COMPANY-14268361

PATIENT
  Age: 61 Year
  Sex: Female
  Weight: 100 kg

DRUGS (4)
  1. ORENCIA [Suspect]
     Dates: start: 20071101
  2. ELAVIL [Concomitant]
  3. LAMICTAL [Concomitant]
  4. PROVIGIL [Concomitant]

REACTIONS (1)
  - DEPRESSION [None]
